FAERS Safety Report 22279285 (Version 2)
Quarter: 2023Q2

REPORT INFORMATION
  Report Type: Report from Study
  Country: CN (occurrence: CN)
  Receive Date: 20230503
  Receipt Date: 20230522
  Transmission Date: 20230722
  Serious: No
  Sender: FDA-Public Use
  Company Number: CN-PFIZER INC-PV202300076325

PATIENT
  Age: 50 Year
  Sex: Female
  Weight: 55 kg

DRUGS (5)
  1. NIRMATRELVIR\RITONAVIR [Suspect]
     Active Substance: NIRMATRELVIR\RITONAVIR
     Indication: COVID-19 treatment
     Dosage: [PF-07321332 300 MG]/[RITONAVIR 100 MG], 2X/DAY
     Dates: start: 20220401, end: 20220405
  2. LIAN HUA QING WEN [Concomitant]
     Indication: COVID-19 treatment
     Dosage: UNK
     Route: 048
     Dates: start: 20220330
  3. METFORMIN\SITAGLIPTIN [Concomitant]
     Active Substance: METFORMIN\SITAGLIPTIN
     Indication: Therapeutic procedure
     Dosage: UNK
     Route: 048
     Dates: start: 20220331
  4. POTASSIUM CHLORIDE [Concomitant]
     Active Substance: POTASSIUM CHLORIDE
     Indication: Mineral supplementation
     Dosage: UNK
     Route: 048
     Dates: start: 202204
  5. SU HUANG ZHI KE [Concomitant]
     Indication: Cough
     Dosage: UNK
     Route: 048

REACTIONS (10)
  - Hypokalaemia [Unknown]
  - Dysgeusia [Recovered/Resolved]
  - Diarrhoea [Recovered/Resolved]
  - Hyperlipidaemia [Unknown]
  - High density lipoprotein decreased [Unknown]
  - Hypomagnesaemia [Recovered/Resolved]
  - Hypophosphataemia [Unknown]
  - Hyponatraemia [Unknown]
  - Hypochloraemia [Unknown]
  - Hypocalcaemia [Unknown]

NARRATIVE: CASE EVENT DATE: 20220401
